FAERS Safety Report 4839067-5 (Version None)
Quarter: 2005Q4

REPORT INFORMATION
  Report Type: 
  Country: None (occurrence: None)
  Receive Date: 20051128
  Receipt Date: 20051128
  Transmission Date: 20060501
  Serious: Yes (Hospitalization)
  Sender: FDA-Public Use
  Company Number: None

PATIENT
  Sex: Female
  Weight: 66.9 kg

DRUGS (1)
  1. CYTARABINE [Suspect]
     Indication: ACUTE MYELOID LEUKAEMIA
     Dosage: SEE IMAGE
     Route: 030
     Dates: start: 20050704

REACTIONS (17)
  - ARACHNOIDITIS [None]
  - ASTHENIA [None]
  - CAUDA EQUINA SYNDROME [None]
  - DEPRESSED LEVEL OF CONSCIOUSNESS [None]
  - DIFFICULTY IN WALKING [None]
  - HAEMORRHAGE [None]
  - HYPOTONIA [None]
  - METASTASES TO SPINE [None]
  - NEURALGIA [None]
  - NEUROGENIC BLADDER [None]
  - PERONEAL NERVE PALSY [None]
  - PLATELET COUNT DECREASED [None]
  - POST PROCEDURAL COMPLICATION [None]
  - SENSORY LOSS [None]
  - SPINAL DISORDER [None]
  - URINARY RETENTION [None]
  - WALKING AID USER [None]
